FAERS Safety Report 9050333 (Version 1)
Quarter: 2013Q1

REPORT INFORMATION
  Report Type: Spontaneous
  Country: AU (occurrence: AU)
  Receive Date: 20130205
  Receipt Date: 20130205
  Transmission Date: 20140127
  Serious: Yes (Death)
  Sender: FDA-Public Use
  Company Number: PHHY2013AU010799

PATIENT
  Sex: Female

DRUGS (2)
  1. ACLASTA [Suspect]
     Dosage: 5 MG, UNK
     Route: 042
     Dates: start: 20100115
  2. ACLASTA [Suspect]
     Dosage: 5 MG, UNK
     Route: 042
     Dates: start: 20110602

REACTIONS (1)
  - Death [Fatal]
